FAERS Safety Report 13139836 (Version 1)
Quarter: 2017Q1

REPORT INFORMATION
  Report Type: Spontaneous
  Country: IT (occurrence: IT)
  Receive Date: 20170123
  Receipt Date: 20170123
  Transmission Date: 20170428
  Serious: Yes (Death)
  Sender: FDA-Public Use
  Company Number: IT-MYLANLABS-2017M1003465

PATIENT

DRUGS (4)
  1. TICLOPIDINE [Suspect]
     Active Substance: TICLOPIDINE
     Indication: CEREBRAL ARTERY EMBOLISM
     Dosage: UNK
  2. WARFARIN [Suspect]
     Active Substance: WARFARIN
     Indication: CEREBRAL ARTERY EMBOLISM
     Dosage: UNK
  3. ASPIRINA [Concomitant]
     Active Substance: ASPIRIN
     Indication: CEREBRAL ARTERY EMBOLISM
     Dosage: UNK
  4. NOREPINEPHRINE [Concomitant]
     Active Substance: NOREPINEPHRINE\NOREPINEPHRINE BITARTRATE
     Indication: PRODUCT USED FOR UNKNOWN INDICATION
     Dosage: UNK

REACTIONS (3)
  - Drug ineffective [Fatal]
  - Cerebral artery embolism [Fatal]
  - Cerebral ischaemia [Fatal]
